FAERS Safety Report 6916694-2 (Version None)
Quarter: 2010Q3

REPORT INFORMATION
  Report Type: 
  Country: None (occurrence: None)
  Receive Date: 20100810
  Receipt Date: 20100803
  Transmission Date: 20110219
  Serious: Yes (Other)
  Sender: FDA-Public Use
  Company Number: DE-B.I. PHARMACEUTICALS,INC./RIDGEFIELD-2010-DE-04165DE

PATIENT
  Age: 73 Year
  Sex: Male

DRUGS (3)
  1. MICARDIS HCT [Suspect]
     Indication: HYPERTENSION
     Route: 048
     Dates: start: 20080101
  2. NEBIVOLOL HCL [Concomitant]
     Indication: HYPERTENSION
  3. MARCUMAR [Concomitant]
     Indication: ATRIAL FIBRILLATION

REACTIONS (10)
  - ADVERSE EVENT [None]
  - ANXIETY [None]
  - BONE DISORDER [None]
  - DEPRESSION [None]
  - DRUG TOXICITY [None]
  - FUNGAL INFECTION [None]
  - LYMPHOMA [None]
  - NAUSEA [None]
  - PAIN [None]
  - SLEEP DISORDER [None]
